FAERS Safety Report 6916319-6 (Version None)
Quarter: 2010Q3

REPORT INFORMATION
  Report Type: 
  Country: None (occurrence: None)
  Receive Date: 20100810
  Receipt Date: 20100729
  Transmission Date: 20110219
  Serious: Yes (Hospitalization)
  Sender: FDA-Public Use
  Company Number: JP-PFIZER INC-2010097034

PATIENT
  Age: 58 Year
  Sex: Male
  Weight: 70 kg

DRUGS (7)
  1. SUNITINIB MALATE [Suspect]
     Indication: RENAL CELL CARCINOMA
     Dosage: 37.5 MG, 1X/DAY
     Route: 048
     Dates: start: 20091005, end: 20091207
  2. GASLON [Concomitant]
     Dosage: 2 MG, 2X/DAY
     Route: 048
  3. PROTECADIN [Concomitant]
     Dosage: 10 MG, 2X/DAY
     Route: 048
  4. MAGMITT [Concomitant]
     Dosage: 330 MG, 3X/DAY
     Route: 048
  5. PRIMPERAN TAB [Concomitant]
     Dosage: 5 MG, 2X/DAY
     Route: 048
  6. CATALIN K [Concomitant]
     Dosage: 2 DF, 3X/DAY
     Route: 047
  7. OXYCONTIN [Concomitant]
     Indication: RENAL CELL CARCINOMA
     Dosage: 5 MG, 2X/DAY
     Route: 048

REACTIONS (1)
  - MALAISE [None]
